FAERS Safety Report 6683579-9 (Version None)
Quarter: 2010Q2

REPORT INFORMATION
  Report Type: 
  Country: None (occurrence: None)
  Receive Date: 20100413
  Receipt Date: 20100329
  Transmission Date: 20101027
  Serious: Yes (Life-Threatening)
  Sender: FDA-Public Use
  Company Number: 009381

PATIENT
  Age: 10 Month
  Sex: Female

DRUGS (5)
  1. BUSULFEX [Suspect]
     Indication: STEM CELL TRANSPLANT
     Dosage: 14 MG/KG
  2. CYCLOPHOSPHAMIDE [Concomitant]
  3. ATG (ANTILYMPHOCYTE IMMUNOGLOBULIN (HORSE) [Concomitant]
  4. CYCLOPORINE (CICLOSPORIN) [Concomitant]
  5. METHOTREXATE [Concomitant]

REACTIONS (5)
  - CYTOMEGALOVIRUS INFECTION [None]
  - ENGRAFT FAILURE [None]
  - GASTROINTESTINAL HAEMORRHAGE [None]
  - HYPOTENSION [None]
  - THROMBOCYTOPENIA [None]
